FAERS Safety Report 17291673 (Version 1)
Quarter: 2020Q1

REPORT INFORMATION
  Report Type: Spontaneous
  Country: NL (occurrence: NL)
  Receive Date: 20200121
  Receipt Date: 20200121
  Transmission Date: 20200409
  Serious: Yes (Hospitalization)
  Sender: FDA-Public Use
  Company Number: NL-BAYER-2020-005737

PATIENT
  Sex: Female
  Weight: 73 kg

DRUGS (2)
  1. YAZ 24+4 [Suspect]
     Active Substance: DROSPIRENONE\ETHINYL ESTRADIOL
     Indication: PREMENSTRUAL SYNDROME
     Dosage: 1 DF, QD
     Dates: start: 20170105, end: 20170310
  2. THYRAX [LEVOTHYROXINE] [Concomitant]
     Dosage: 25 ?G

REACTIONS (1)
  - Pulmonary embolism [Recovering/Resolving]
